FAERS Safety Report 25709614 (Version 1)
Quarter: 2025Q3

REPORT INFORMATION
  Report Type: Spontaneous
  Country: EU (occurrence: EU)
  Receive Date: 20250821
  Receipt Date: 20250821
  Transmission Date: 20251020
  Serious: Yes (Other)
  Sender: MYLAN
  Company Number: None

PATIENT
  Age: 32 Year
  Sex: Female

DRUGS (12)
  1. EFFEXOR XR [Suspect]
     Active Substance: VENLAFAXINE HYDROCHLORIDE
     Indication: Perinatal depression
     Dosage: 1 DOSAGE FORM, QD (SINCE SEVERAL MONTHS, MAXIMUM 1 YEAR)
  2. EFFEXOR XR [Suspect]
     Active Substance: VENLAFAXINE HYDROCHLORIDE
     Dosage: 1 DOSAGE FORM, QD (SINCE SEVERAL MONTHS, MAXIMUM 1 YEAR)
     Route: 048
  3. EFFEXOR XR [Suspect]
     Active Substance: VENLAFAXINE HYDROCHLORIDE
     Dosage: 1 DOSAGE FORM, QD (SINCE SEVERAL MONTHS, MAXIMUM 1 YEAR)
     Route: 048
  4. EFFEXOR XR [Suspect]
     Active Substance: VENLAFAXINE HYDROCHLORIDE
     Dosage: 1 DOSAGE FORM, QD (SINCE SEVERAL MONTHS, MAXIMUM 1 YEAR)
  5. VENLAFAXINE [Suspect]
     Active Substance: VENLAFAXINE HYDROCHLORIDE
     Indication: Perinatal depression
     Dosage: 1 DOSAGE FORM, QD (DOSE ADDED A FEW WEEKS OR MONTHS AGO TO EFEXOR (VENLAFAXINE) 150MG)
  6. VENLAFAXINE [Suspect]
     Active Substance: VENLAFAXINE HYDROCHLORIDE
     Dosage: 1 DOSAGE FORM, QD (DOSE ADDED A FEW WEEKS OR MONTHS AGO TO EFEXOR (VENLAFAXINE) 150MG)
     Route: 048
  7. VENLAFAXINE [Suspect]
     Active Substance: VENLAFAXINE HYDROCHLORIDE
     Dosage: 1 DOSAGE FORM, QD (DOSE ADDED A FEW WEEKS OR MONTHS AGO TO EFEXOR (VENLAFAXINE) 150MG)
     Route: 048
  8. VENLAFAXINE [Suspect]
     Active Substance: VENLAFAXINE HYDROCHLORIDE
     Dosage: 1 DOSAGE FORM, QD (DOSE ADDED A FEW WEEKS OR MONTHS AGO TO EFEXOR (VENLAFAXINE) 150MG)
  9. DESOGESTREL\ETHINYL ESTRADIOL [Suspect]
     Active Substance: DESOGESTREL\ETHINYL ESTRADIOL
     Indication: Product used for unknown indication
     Dosage: 1 DOSAGE FORM, QD
     Dates: start: 202405
  10. DESOGESTREL\ETHINYL ESTRADIOL [Suspect]
     Active Substance: DESOGESTREL\ETHINYL ESTRADIOL
     Dosage: 1 DOSAGE FORM, QD
     Route: 065
     Dates: start: 202405
  11. DESOGESTREL\ETHINYL ESTRADIOL [Suspect]
     Active Substance: DESOGESTREL\ETHINYL ESTRADIOL
     Dosage: 1 DOSAGE FORM, QD
     Route: 065
     Dates: start: 202405
  12. DESOGESTREL\ETHINYL ESTRADIOL [Suspect]
     Active Substance: DESOGESTREL\ETHINYL ESTRADIOL
     Dosage: 1 DOSAGE FORM, QD
     Dates: start: 202405

REACTIONS (2)
  - Unintended pregnancy [Recovering/Resolving]
  - Maternal exposure during pregnancy [Unknown]

NARRATIVE: CASE EVENT DATE: 20250626
